FAERS Safety Report 24320818 (Version 1)
Quarter: 2024Q3

REPORT INFORMATION
  Report Type: Report from Study
  Country: US (occurrence: US)
  Receive Date: 20240915
  Receipt Date: 20240915
  Transmission Date: 20241017
  Serious: Yes (Hospitalization)
  Sender: ARDELYX
  Company Number: US-ARDELYX-2024ARDX006761

PATIENT
  Sex: Male

DRUGS (1)
  1. XPHOZAH [Suspect]
     Active Substance: TENAPANOR HYDROCHLORIDE
     Indication: Chronic kidney disease
     Dosage: 30 MILLIGRAM, BID
     Route: 048

REACTIONS (2)
  - Intensive care [Unknown]
  - Product distribution issue [Unknown]
